FAERS Safety Report 10331025 (Version 1)
Quarter: 2014Q3

REPORT INFORMATION
  Report Type: Spontaneous
  Country: US (occurrence: US)
  Receive Date: 20140722
  Receipt Date: 20140722
  Transmission Date: 20150326
  Serious: No
  Sender: FDA-Public Use
  Company Number: US-ASTRAZENECA-2014SE50146

PATIENT
  Age: 820 Month
  Sex: Female
  Weight: 54.4 kg

DRUGS (2)
  1. ACCOLATE [Suspect]
     Active Substance: ZAFIRLUKAST
     Indication: HYPOGAMMAGLOBULINAEMIA
     Dosage: 10 MG TWO TIMES A DAY, DR REDDY BRAND ZAFIRLUKAST(GENERIC)
     Route: 065
     Dates: start: 201407
  2. ACCOLATE [Suspect]
     Active Substance: ZAFIRLUKAST
     Indication: HYPOGAMMAGLOBULINAEMIA
     Route: 048
     Dates: start: 201404, end: 201407

REACTIONS (3)
  - Drug ineffective [Unknown]
  - Fatigue [Unknown]
  - Intentional product misuse [Unknown]

NARRATIVE: CASE EVENT DATE: 201404
